FAERS Safety Report 8996866 (Version 1)
Quarter: 2012Q4

REPORT INFORMATION
  Report Type: Spontaneous
  Country: DE (occurrence: None)
  Receive Date: 20121220
  Receipt Date: 20121220
  Transmission Date: 20130627
  Serious: Yes (Other)
  Sender: FDA-Public Use
  Company Number: 2012-12383

PATIENT
  Sex: Female

DRUGS (2)
  1. FLUOXETINE HYDROCHLORIDE (UNKNOWN) (FLUOXETINE HYDROCHLORIDE) UNK, UNKUNK [Suspect]
     Indication: ANXIETY DISORDER
     Route: 048
  2. FLUOXETINE HYDROCHLORIDE (UNKNOWN) (FLUOXETINE HYDROCHLORIDE) UNK, UNKUNK [Suspect]
     Indication: ANXIETY DISORDER
     Route: 048

REACTIONS (2)
  - Foetal death [None]
  - Maternal drugs affecting foetus [None]
